FAERS Safety Report 6659350-0 (Version None)
Quarter: 2010Q1

REPORT INFORMATION
  Report Type: 
  Country: None (occurrence: None)
  Receive Date: 20100330
  Receipt Date: 20100319
  Transmission Date: 20100710
  Serious: No
  Sender: FDA-Public Use
  Company Number: US-BIOGENIDEC-2010BI009743

PATIENT
  Sex: Female

DRUGS (1)
  1. TYSABRI [Suspect]
     Indication: MULTIPLE SCLEROSIS
     Route: 042
     Dates: start: 20090825

REACTIONS (6)
  - ARTHRITIS [None]
  - CHEST PAIN [None]
  - FINGER DEFORMITY [None]
  - GALLBLADDER NON-FUNCTIONING [None]
  - MEMORY IMPAIRMENT [None]
  - PAIN IN EXTREMITY [None]
